FAERS Safety Report 21049133 (Version 1)
Quarter: 2022Q3

REPORT INFORMATION
  Report Type: Spontaneous
  Country: MY (occurrence: MY)
  Receive Date: 20220706
  Receipt Date: 20220706
  Transmission Date: 20221026
  Serious: Yes (Other)
  Sender: FDA-Public Use
  Company Number: MY-PFIZER INC-202200923271

PATIENT
  Age: 30 Year
  Sex: Female

DRUGS (1)
  1. CELEBREX [Suspect]
     Active Substance: CELECOXIB
     Indication: Pain
     Dosage: 200 MG, 1X/DAY
     Route: 048

REACTIONS (2)
  - Eye swelling [Recovering/Resolving]
  - Dyspnoea [Recovering/Resolving]
